FAERS Safety Report 14182325 (Version 2)
Quarter: 2018Q1

REPORT INFORMATION
  Report Type: Report from Study
  Country: IE (occurrence: IE)
  Receive Date: 20171113
  Receipt Date: 20180323
  Transmission Date: 20180508
  Serious: Yes (Hospitalization, Other)
  Sender: FDA-Public Use
  Company Number: PHFR2017IE002395

PATIENT
  Sex: Male

DRUGS (2)
  1. COSENTYX [Suspect]
     Active Substance: SECUKINUMAB
     Indication: PSORIATIC ARTHROPATHY
     Dosage: 300 MG, UNK
     Route: 058
     Dates: start: 20150707, end: 201711
  2. COSENTYX [Suspect]
     Active Substance: SECUKINUMAB
     Indication: PSORIASIS

REACTIONS (5)
  - Basal cell carcinoma [Not Recovered/Not Resolved]
  - Bladder cancer [Unknown]
  - Prostate cancer [Unknown]
  - Urinary bladder polyp [Unknown]
  - Dermatitis infected [Not Recovered/Not Resolved]

NARRATIVE: CASE EVENT DATE: 2016
